FAERS Safety Report 17734894 (Version 1)
Quarter: 2020Q2

REPORT INFORMATION
  Report Type: Report from Study
  Country: SE (occurrence: SE)
  Receive Date: 20200501
  Receipt Date: 20200501
  Transmission Date: 20200714
  Serious: Yes (Hospitalization)
  Sender: FDA-Public Use
  Company Number: SE-MYLANLABS-2020M1042815

PATIENT
  Age: 78 Year
  Sex: Male
  Weight: 67 kg

DRUGS (13)
  1. GEMCITABINE. [Suspect]
     Active Substance: GEMCITABINE
     Indication: ADENOCARCINOMA PANCREAS
     Dosage: PATIENTS RECEIVED 1000MG/M2 GEMCITABINE ON DAY 1,8 AND 15 (ONE CYCLE) FOLLOWED BY 7 DAYS REST.
     Route: 041
     Dates: start: 20101102, end: 20101116
  2. OMEPRAZOL                          /00661201/ [Concomitant]
     Active Substance: OMEPRAZOLE
     Indication: GASTRITIS
     Route: 048
     Dates: start: 20100820
  3. GLUCOSE [Concomitant]
     Active Substance: DEXTROSE
     Indication: DIARRHOEA
     Dosage: 1000 MILLIGRAM, PRN
     Route: 041
     Dates: start: 20101123, end: 20101123
  4. LOPERAMIDE [Concomitant]
     Active Substance: LOPERAMIDE
     Indication: DIARRHOEA
     Dosage: 2 MILLIGRAM, PRN
     Route: 048
     Dates: start: 20101025
  5. PARACETAMOL [Concomitant]
     Active Substance: ACETAMINOPHEN
     Indication: ABDOMINAL PAIN
     Dosage: 500 MILLIGRAM, PRN
     Route: 048
     Dates: start: 20101125, end: 20101129
  6. CEFTIBUTEN. [Concomitant]
     Active Substance: CEFTIBUTEN
     Indication: URINARY TRACT INFECTION
     Dosage: 400 MILLIGRAM, QD
     Route: 048
     Dates: start: 20101027, end: 20101123
  7. METHENAMINE [Concomitant]
     Active Substance: METHENAMINE
     Indication: URINARY TRACT INFECTION
     Dosage: 1 MILLIGRAM, Q4D
     Route: 048
     Dates: start: 20100824
  8. CREON [Concomitant]
     Active Substance: PANCRELIPASE AMYLASE\PANCRELIPASE LIPASE\PANCRELIPASE PROTEASE
     Indication: PANCREATIC ENZYMES DECREASED
     Dosage: 40000 INTERNATIONAL UNIT, Q3D
     Route: 048
     Dates: start: 20100818
  9. METOKLOPRAMID [Concomitant]
     Indication: NAUSEA
     Dosage: 10 MILLIGRAM, PRN
     Route: 048
     Dates: start: 20101007
  10. KALIUMKLORID [Concomitant]
     Indication: HYPOKALAEMIA
     Dosage: 750 MILLIGRAM
     Route: 048
     Dates: start: 20101124
  11. ZOPIKLON MYLAN [Concomitant]
     Active Substance: ZOPICLONE
     Indication: INSOMNIA
     Dosage: 5 MILLIGRAM, PRN
     Route: 048
     Dates: start: 20100924
  12. CAPECITABINE. [Suspect]
     Active Substance: CAPECITABINE
     Indication: ADENOCARCINOMA PANCREAS
     Dosage: 1660MG/M2/DAY IN 2 DIVIDED DOSES ORALLY FOR 21 DAYS FOLLOWED BY 7 DAYS? REST FOR 6 CYCLES.
     Route: 048
     Dates: start: 20101102
  13. DALTEPARIN [Concomitant]
     Active Substance: DALTEPARIN
     Indication: THROMBOSIS
     Dosage: 75000 INTERNATIONAL UNIT, QD
     Route: 058
     Dates: start: 20100929

REACTIONS (1)
  - Subileus [Recovered/Resolved]

NARRATIVE: CASE EVENT DATE: 20101123
